FAERS Safety Report 13449797 (Version 1)
Quarter: 2017Q2

REPORT INFORMATION
  Report Type: Spontaneous
  Country: US (occurrence: US)
  Receive Date: 20170417
  Receipt Date: 20170417
  Transmission Date: 20170830
  Serious: Yes (Other)
  Sender: FDA-Public Use
  Company Number: US-BION-20160310

PATIENT
  Age: 80 Year
  Sex: Male
  Weight: 81.65 kg

DRUGS (1)
  1. ALEVE [Suspect]
     Active Substance: NAPROXEN SODIUM
     Indication: ANALGESIC THERAPY
     Dosage: 1 DF QID
     Route: 048

REACTIONS (1)
  - Blood glucose increased [Not Recovered/Not Resolved]
